FAERS Safety Report 4733737-5 (Version None)
Quarter: 2005Q3

REPORT INFORMATION
  Report Type: 
  Country: None (occurrence: None)
  Receive Date: 20050729
  Receipt Date: 20050715
  Transmission Date: 20060218
  Serious: Yes (Hospitalization)
  Sender: FDA-Public Use
  Company Number: 2005-0008533

PATIENT
  Age: 41 Year
  Sex: Male

DRUGS (5)
  1. VIREAD [Suspect]
     Indication: HIV INFECTION
     Dosage: 300 MG, 1 IN 1 D, ORAL
     Route: 048
     Dates: start: 20050401, end: 20050501
  2. KALETRA [Concomitant]
  3. ALDACTONE [Concomitant]
  4. AMPHO-MORONAL (AMPHOTERICIN B) [Concomitant]
  5. MAGNESIOCARD CITRON [Concomitant]

REACTIONS (8)
  - BLOOD CALCIUM DECREASED [None]
  - BLOOD CREATINE PHOSPHOKINASE INCREASED [None]
  - CONDITION AGGRAVATED [None]
  - DEMYELINATING POLYNEUROPATHY [None]
  - HAEMOGLOBIN DECREASED [None]
  - HYPOALBUMINAEMIA [None]
  - MUSCLE SPASMS [None]
  - THYROXINE FREE DECREASED [None]
